FAERS Safety Report 9498576 (Version 2)
Quarter: 2015Q3

REPORT INFORMATION
  Report Type: Spontaneous
  Country: US (occurrence: US)
  Receive Date: 20130904
  Receipt Date: 20150728
  Transmission Date: 20151125
  Serious: No
  Sender: FDA-Public Use
  Company Number: US-PFIZER INC-2013252635

PATIENT
  Age: 54 Year
  Sex: Male

DRUGS (3)
  1. LIPITOR [Suspect]
     Active Substance: ATORVASTATIN CALCIUM
     Dosage: UNK
  2. LISINOPRIL. [Suspect]
     Active Substance: LISINOPRIL
     Dosage: UNK
  3. LENIPRIL [Suspect]
     Active Substance: ENALAPRIL MALEATE
     Dosage: UNK

REACTIONS (1)
  - Drug hypersensitivity [Unknown]
